FAERS Safety Report 13125094 (Version 1)
Quarter: 2017Q1

REPORT INFORMATION
  Report Type: Spontaneous
  Country: US (occurrence: US)
  Receive Date: 20170117
  Receipt Date: 20170117
  Transmission Date: 20170428
  Serious: No
  Sender: FDA-Public Use
  Company Number: None

PATIENT
  Sex: Female

DRUGS (1)
  1. ESTRADIOL 2MG [Suspect]
     Active Substance: ESTRADIOL
     Indication: MENOPAUSE
     Dosage: FREQUENCY - 2 TAB SL QHS
     Route: 048
     Dates: start: 20150119, end: 20151109

REACTIONS (2)
  - Vulvovaginal dryness [None]
  - Vulvovaginal pruritus [None]
